FAERS Safety Report 6071764-9 (Version None)
Quarter: 2009Q1

REPORT INFORMATION
  Report Type: 
  Country: None (occurrence: None)
  Receive Date: 20090205
  Receipt Date: 20081112
  Transmission Date: 20090719
  Serious: Yes (Hospitalization)
  Sender: FDA-Public Use
  Company Number: US025102

PATIENT
  Age: 67 Year
  Sex: Male

DRUGS (8)
  1. BENDAMUSTINE [Suspect]
     Indication: NON-HODGKIN'S LYMPHOMA
     Dosage: 120 MG/KG FIRST THRU FOURTH CYCLE QD INTRAVENOUS
     Route: 042
     Dates: start: 20080123, end: 20080328
  2. BENDAMUSTINE [Suspect]
     Indication: NON-HODGKIN'S LYMPHOMA
     Dosage: 90 MG/KG FIFTH AND SIXTH CYCLE QD INTRAVENOUS
     Route: 042
     Dates: start: 20080508, end: 20080530
  3. ACYCLOVIR [Suspect]
     Dosage: 200 MG
     Dates: start: 20080124
  4. FLUCONAZOLE [Concomitant]
  5. SULFAMETHOXAZOLE AND TRIMETHOPRIM [Concomitant]
  6. MECOBALAMIN [Concomitant]
  7. ADENOSINE [Concomitant]
  8. REBAMIPIDE [Concomitant]

REACTIONS (19)
  - ANAEMIA HAEMOLYTIC AUTOIMMUNE [None]
  - ASPARTATE AMINOTRANSFERASE INCREASED [None]
  - BLOOD BILIRUBIN INCREASED [None]
  - BLOOD BILIRUBIN UNCONJUGATED INCREASED [None]
  - BLOOD LACTATE DEHYDROGENASE INCREASED [None]
  - BLOOD UREA INCREASED [None]
  - BRAIN NATRIURETIC PEPTIDE INCREASED [None]
  - C-REACTIVE PROTEIN INCREASED [None]
  - COUGH [None]
  - DIZZINESS [None]
  - HEART RATE INCREASED [None]
  - INFECTION [None]
  - MALAISE [None]
  - OROPHARYNGEAL PAIN [None]
  - PLATELET COUNT DECREASED [None]
  - PYREXIA [None]
  - SERUM FERRITIN INCREASED [None]
  - TACHYCARDIA [None]
  - VIRAL INFECTION [None]
